FAERS Safety Report 21754982 (Version 2)
Quarter: 2023Q1

REPORT INFORMATION
  Report Type: Spontaneous
  Country: US (occurrence: US)
  Receive Date: 20221220
  Receipt Date: 20230323
  Transmission Date: 20230418
  Serious: Yes (Other)
  Sender: FDA-Public Use
  Company Number: US-BAYER-2022P028460

PATIENT
  Age: 76 Year
  Sex: Male

DRUGS (2)
  1. REGORAFENIB [Suspect]
     Active Substance: REGORAFENIB
     Indication: Glioblastoma
     Dosage: 160 MG, QD
     Route: 048
     Dates: start: 20210211
  2. REGORAFENIB [Suspect]
     Active Substance: REGORAFENIB
     Indication: Glioblastoma
     Dosage: 120 MG, QD
     Dates: end: 20210603

REACTIONS (3)
  - Glioblastoma [None]
  - Fatigue [Recovered/Resolved]
  - Off label use [None]

NARRATIVE: CASE EVENT DATE: 20210303
